FAERS Safety Report 18697717 (Version 2)
Quarter: 2021Q4

REPORT INFORMATION
  Report Type: Spontaneous
  Country: PL (occurrence: PL)
  Receive Date: 20210104
  Receipt Date: 20211123
  Transmission Date: 20220303
  Serious: Yes (Other)
  Sender: FDA-Public Use
  Company Number: PL-BOEHRINGERINGELHEIM-2021-BI-073825

PATIENT
  Age: 70 Year
  Sex: Male

DRUGS (2)
  1. OFEV [Suspect]
     Active Substance: NINTEDANIB
     Indication: Product used for unknown indication
     Dates: start: 20200625
  2. OFEV [Suspect]
     Active Substance: NINTEDANIB
     Dosage: TREATMENT WITH OFEV IS CONTINUED AT A DOSE OF 2 X 100 MG

REACTIONS (1)
  - Ischaemic stroke [Unknown]

NARRATIVE: CASE EVENT DATE: 20201010
